FAERS Safety Report 11090531 (Version 2)
Quarter: 2015Q2

REPORT INFORMATION
  Report Type: Spontaneous
  Country: US (occurrence: US)
  Receive Date: 20150505
  Receipt Date: 20150617
  Transmission Date: 20150821
  Serious: Yes (Hospitalization)
  Sender: FDA-Public Use
  Company Number: US-BAYER-2015-183060

PATIENT
  Age: 56 Year
  Sex: Female

DRUGS (1)
  1. AVELOX [Suspect]
     Active Substance: MOXIFLOXACIN HYDROCHLORIDE
     Dosage: 400 MG, QD
     Route: 042
     Dates: start: 20150404, end: 20150404

REACTIONS (3)
  - Vessel puncture site erythema [Recovering/Resolving]
  - Injection site vesicles [Recovering/Resolving]
  - Vessel puncture site swelling [Recovering/Resolving]

NARRATIVE: CASE EVENT DATE: 20150404
